FAERS Safety Report 20714086 (Version 1)
Quarter: 2022Q2

REPORT INFORMATION
  Report Type: Spontaneous
  Country: US (occurrence: None)
  Receive Date: 20220414
  Receipt Date: 20220414
  Transmission Date: 20220721
  Serious: Yes (Hospitalization)
  Sender: FDA-Public Use
  Company Number: None

PATIENT
  Age: 25 Year
  Sex: Female
  Weight: 147.42 kg

DRUGS (1)
  1. BEBTELOVIMAB [Suspect]
     Active Substance: BEBTELOVIMAB
     Indication: COVID-19

REACTIONS (5)
  - Erythema [None]
  - Skin tightness [None]
  - Tachycardia [None]
  - Presyncope [None]
  - Injection related reaction [None]

NARRATIVE: CASE EVENT DATE: 20220414
